FAERS Safety Report 12486926 (Version 1)
Quarter: 2016Q2

REPORT INFORMATION
  Report Type: Other
  Country: None (occurrence: US)
  Receive Date: 20160621
  Receipt Date: 20160621
  Transmission Date: 20160815
  Serious: Yes (Other)
  Sender: FDA-Public Use
  Company Number: US-GUTHY-RENKER LLC-1054163

PATIENT
  Sex: Female

DRUGS (3)
  1. MEANINGFUL BEAUTY CINDY CRAWFORD ANTIOXIDANT SPF 20 UVA/UVB [Suspect]
     Active Substance: AVOBENZONE\OCTINOXATE\OCTISALATE\OXYBENZONE
     Indication: PROPHYLAXIS AGAINST SOLAR RADIATION
     Route: 061
     Dates: start: 20160317
  2. ZANAFLEX [Concomitant]
     Active Substance: TIZANIDINE HYDROCHLORIDE
  3. VITAMIN D 3 [Concomitant]

REACTIONS (4)
  - Application site burn [Not Recovered/Not Resolved]
  - Skin mass [None]
  - Wrong technique in product usage process [None]
  - Condition aggravated [None]
